FAERS Safety Report 23739524 (Version 7)
Quarter: 2024Q2

REPORT INFORMATION
  Report Type: Spontaneous
  Country: FR (occurrence: FR)
  Receive Date: 20240413
  Receipt Date: 20240530
  Transmission Date: 20240716
  Serious: Yes (Death, Other)
  Sender: FDA-Public Use
  Company Number: FR-TEVA-VS-3177225

PATIENT
  Age: 74 Year
  Sex: Male

DRUGS (2)
  1. FLUOROURACIL [Suspect]
     Active Substance: FLUOROURACIL
     Indication: Adenocarcinoma gastric
     Dosage: 1000 MG/ 20 ML?TOTAL 4 SESSIONS OF CHEMOTHERAPY
     Route: 065
     Dates: start: 20230523, end: 20230718
  2. ZOLOFT [Concomitant]
     Active Substance: SERTRALINE HYDROCHLORIDE
     Indication: Product used for unknown indication
     Route: 065

REACTIONS (16)
  - Malnutrition [Fatal]
  - Wernicke^s encephalopathy [Not Recovered/Not Resolved]
  - Irritability [Recovering/Resolving]
  - Cognitive disorder [Not Recovered/Not Resolved]
  - Hyporeflexia [Recovering/Resolving]
  - Burning sensation [Not Recovered/Not Resolved]
  - Cerebellar syndrome [Unknown]
  - Fatigue [Not Recovered/Not Resolved]
  - Memory impairment [Recovering/Resolving]
  - Weight decreased [Not Recovered/Not Resolved]
  - General physical health deterioration [Recovering/Resolving]
  - Peritonitis [Unknown]
  - Disorientation [Recovering/Resolving]
  - Recurrent cancer [Fatal]
  - Anxiety [Recovering/Resolving]
  - Attention deficit hyperactivity disorder [Recovering/Resolving]

NARRATIVE: CASE EVENT DATE: 20230718
